FAERS Safety Report 4750233-X (Version None)
Quarter: 2005Q3

REPORT INFORMATION
  Report Type: 
  Country: None (occurrence: None)
  Receive Date: 20050818
  Receipt Date: 20050804
  Transmission Date: 20060218
  Serious: Yes (Hospitalization)
  Sender: FDA-Public Use
  Company Number: M03-341-055

PATIENT
  Age: 61 Year
  Sex: Male

DRUGS (3)
  1. VELCADE [Suspect]
     Indication: MULTIPLE MYELOMA
     Dosage: INTRAVENOUS
     Route: 042
     Dates: start: 20030602
  2. THEOPHYLLINE [Concomitant]
  3. VENLAFAXINE [Concomitant]

REACTIONS (5)
  - BLOOD CREATININE ABNORMAL [None]
  - COLITIS ISCHAEMIC [None]
  - GENERAL PHYSICAL HEALTH DETERIORATION [None]
  - PLATELET COUNT ABNORMAL [None]
  - TACHYCARDIA [None]
